FAERS Safety Report 4783181-X (Version None)
Quarter: 2005Q3

REPORT INFORMATION
  Report Type: 
  Country: None (occurrence: None)
  Receive Date: 20050929
  Receipt Date: 20040504
  Transmission Date: 20060218
  Serious: Yes (Death, Hospitalization, Disabling)
  Sender: FDA-Public Use
  Company Number: IT-GLAXOSMITHKLINE-B0332838A

PATIENT
  Age: 57 Year
  Sex: Male

DRUGS (2)
  1. LAMIVUDINE [Suspect]
     Indication: HEPATITIS B
     Dosage: 300MG PER DAY
     Route: 048
  2. INSULIN [Concomitant]

REACTIONS (16)
  - ABASIA [None]
  - ACUTE RESPIRATORY FAILURE [None]
  - AREFLEXIA [None]
  - ASTHENIA [None]
  - CARDIAC ARREST [None]
  - DEATH [None]
  - DYSPHONIA [None]
  - GAIT DISTURBANCE [None]
  - LIVER FUNCTION TEST ABNORMAL [None]
  - MITOCHONDRIAL CYTOPATHY [None]
  - MITOCHONDRIAL DNA DEPLETION [None]
  - MUSCULAR WEAKNESS [None]
  - PERIPHERAL SENSORY NEUROPATHY [None]
  - PERONEAL NERVE PALSY [None]
  - QUADRIPARESIS [None]
  - RESPIRATORY DISORDER [None]
